FAERS Safety Report 22118232 (Version 1)
Quarter: 2023Q1

REPORT INFORMATION
  Report Type: Spontaneous
  Country: FR (occurrence: FR)
  Receive Date: 20230321
  Receipt Date: 20230321
  Transmission Date: 20230418
  Serious: Yes (Other)
  Sender: FDA-Public Use
  Company Number: None

PATIENT
  Age: 69 Year
  Sex: Male
  Weight: 89 kg

DRUGS (2)
  1. OMEPRAZOLE [Suspect]
     Active Substance: OMEPRAZOLE
     Indication: Gastrooesophageal reflux disease
     Dosage: UNK (20 MG/J)
     Route: 048
  2. BRICANYL [Suspect]
     Active Substance: TERBUTALINE SULFATE
     Indication: Asthma
     Dosage: UNK (00 MICROGRAMMES/DOSE, POUDRE POUR INHALATION) (0 A 4 FOIS PAR JOUR)
     Dates: start: 20220401, end: 20230116

REACTIONS (1)
  - Axonal neuropathy [Not Recovered/Not Resolved]

NARRATIVE: CASE EVENT DATE: 20221101
